FAERS Safety Report 25798430 (Version 1)
Quarter: 2025Q3

REPORT INFORMATION
  Report Type: Other
  Country: GB (occurrence: GB)
  Receive Date: 20250913
  Receipt Date: 20250913
  Transmission Date: 20251021
  Serious: Yes (Hospitalization, Other)
  Sender: GLENMARK
  Company Number: GB-MHRA-TPP37381059C9067226YC1755866029148

PATIENT
  Age: 63 Year
  Sex: Female
  Weight: 46 kg

DRUGS (14)
  1. PRAMIPEXOLE DIHYDROCHLORIDE [Suspect]
     Active Substance: PRAMIPEXOLE DIHYDROCHLORIDE
     Indication: Ill-defined disorder
     Dosage: 88 MICROGRAM, OD (TAKE ONE TABLET EACH NIGHT)
     Route: 065
     Dates: start: 20250723, end: 20250820
  2. ALENDRONIC ACID [Concomitant]
     Active Substance: ALENDRONIC ACID
     Indication: Ill-defined disorder
     Dosage: UNK, QW (TAKE ONE WEEKLY)
     Route: 065
     Dates: start: 20241128, end: 20250807
  3. AMLODIPINE [Concomitant]
     Active Substance: AMLODIPINE BESYLATE
     Indication: Ill-defined disorder
     Dosage: UNK, QD (TAKE ONE DAILY)
     Route: 065
     Dates: start: 20241128, end: 20250807
  4. ATORVASTATIN [Concomitant]
     Active Substance: ATORVASTATIN
     Indication: Ill-defined disorder
     Dosage: UNK, QD (TAKE ONE DAILY)
     Route: 065
     Dates: start: 20241128
  5. EZETIMIBE [Concomitant]
     Active Substance: EZETIMIBE
     Indication: Ill-defined disorder
     Dosage: UNK, QD (TAKE ONE DAILY)
     Route: 065
     Dates: start: 20241128
  6. INDAPAMIDE [Concomitant]
     Active Substance: INDAPAMIDE
     Indication: Ill-defined disorder
     Route: 065
     Dates: start: 20241128, end: 20250807
  7. IRBESARTAN [Concomitant]
     Active Substance: IRBESARTAN
     Indication: Ill-defined disorder
     Dosage: UNK, QD (TAKE ONE ONCE DAILY)
     Route: 065
     Dates: start: 20241128, end: 20250807
  8. ALFACALCIDOL [Concomitant]
     Active Substance: ALFACALCIDOL
     Indication: Ill-defined disorder
     Dosage: UNK, QD (TAKE ONE DAILY)
     Route: 065
     Dates: start: 20241206
  9. CALCIUM ACETATE [Concomitant]
     Active Substance: CALCIUM ACETATE
     Indication: Ill-defined disorder
     Dosage: 1 DOSAGE FORM, TID (TAKE ONE TABLET THREE TIMES A DAY)
     Route: 065
     Dates: start: 20241206, end: 20250723
  10. FOLIC ACID [Concomitant]
     Active Substance: FOLIC ACID
     Indication: Ill-defined disorder
     Dosage: UNK, QD (TAKE ONE DAILY)
     Route: 065
     Dates: start: 20241206
  11. SEVELAMER [Concomitant]
     Active Substance: SEVELAMER
     Indication: Ill-defined disorder
     Dosage: 2 DOSAGE FORM, TID (TAKE TWO TABLETS THREE TIMES A DAY WITH FOOD)
     Route: 065
     Dates: start: 20250723
  12. SODIUM BICARBONATE [Concomitant]
     Active Substance: SODIUM BICARBONATE
     Indication: Ill-defined disorder
     Dosage: 2 DOSAGE FORM, TID (TAKE TWO CAPSULES THREE TIMES A DAY)
     Route: 065
     Dates: start: 20250723
  13. PREGABALIN [Concomitant]
     Active Substance: PREGABALIN
     Indication: Ill-defined disorder
     Dosage: 1 DOSAGE FORM, OD (TAKE ONE TABLET EACH NIGHT)
     Route: 065
     Dates: start: 20250807
  14. Fortisip Compact Protein [Concomitant]
     Indication: Ill-defined disorder
     Dosage: 125 MILLILITRE, QD (TAKE ONE(125ML) DAILY  )
     Route: 065
     Dates: start: 20250811

REACTIONS (1)
  - Hyponatraemia [Recovered/Resolved]

NARRATIVE: CASE EVENT DATE: 20250820
